FAERS Safety Report 8493046 (Version 9)
Quarter: 2015Q2

REPORT INFORMATION
  Report Type: Report from Study
  Country: CA (occurrence: CA)
  Receive Date: 20120404
  Receipt Date: 20150601
  Transmission Date: 20150821
  Serious: Yes (Death, Hospitalization, Other)
  Sender: FDA-Public Use
  Company Number: PHHY2012CA028276

PATIENT
  Age: 77 Year
  Sex: Male

DRUGS (3)
  1. SANDOSTATIN LAR DEPOT [Suspect]
     Active Substance: OCTREOTIDE ACETATE
     Indication: METASTATIC CARCINOID TUMOUR
     Dosage: 20 MG, QMO
     Route: 030
     Dates: start: 20110811
  2. SANDOSTATIN LAR DEPOT [Suspect]
     Active Substance: OCTREOTIDE ACETATE
     Dosage: 30 MG, QMO
     Route: 030
     Dates: end: 20150429
  3. INFLUENZA VACCINE [Concomitant]
     Active Substance: INFLUENZA VIRUS VACCINE
     Indication: ANTIVIRAL PROPHYLAXIS
     Route: 065

REACTIONS (13)
  - Femur fracture [Unknown]
  - Blood pressure decreased [Unknown]
  - Death [Fatal]
  - Pyrexia [Unknown]
  - Blood pressure systolic increased [Unknown]
  - Chills [Unknown]
  - Decreased appetite [Unknown]
  - Influenza like illness [Recovered/Resolved]
  - Diarrhoea [Recovering/Resolving]
  - Upper limb fracture [Unknown]
  - Fall [Unknown]
  - Hot flush [Unknown]
  - Body temperature decreased [Unknown]

NARRATIVE: CASE EVENT DATE: 20120303
